FAERS Safety Report 18295411 (Version 2)
Quarter: 2020Q4

REPORT INFORMATION
  Report Type: Spontaneous
  Country: US (occurrence: US)
  Receive Date: 20200922
  Receipt Date: 20201109
  Transmission Date: 20210113
  Serious: Yes (Other)
  Sender: FDA-Public Use
  Company Number: US-MEDEXUS PHARMA, INC.-2020MED00218

PATIENT
  Sex: Female
  Weight: 88.44 kg

DRUGS (7)
  1. RASUVO [Suspect]
     Active Substance: METHOTREXATE SODIUM
     Indication: RHEUMATOID ARTHRITIS
     Dosage: 25 MG, INJECTED INTO THE UPPER THIGH
     Dates: start: 202003, end: 202007
  2. RASUVO [Suspect]
     Active Substance: METHOTREXATE SODIUM
     Dosage: 7.5 MG, 1X/DAY INJECTED INTO THE UPPER THIGH
     Dates: start: 2020
  3. RASUVO [Suspect]
     Active Substance: METHOTREXATE SODIUM
     Dosage: 20 MG, 1X/WEEK INJECTED INTO THE UPPER THIGH
     Dates: start: 202007, end: 2020
  4. SIMPONI [Concomitant]
     Active Substance: GOLIMUMAB
     Dosage: UNK
     Dates: start: 2018
  5. RASUVO [Suspect]
     Active Substance: METHOTREXATE SODIUM
     Dosage: 22.5 MG, 1X/WEEK INJECTED INTO THE UPPER THIGH
     Dates: start: 202007, end: 202007
  6. HYDROCHLOROTHIAZIDE. [Suspect]
     Active Substance: HYDROCHLOROTHIAZIDE
     Dosage: 12.5 MG, 3X/WEEK
     Dates: end: 2020
  7. CARVEDILOL. [Suspect]
     Active Substance: CARVEDILOL
     Dosage: 12.5 MG, 2X/DAY
     Dates: end: 2020

REACTIONS (2)
  - Creatinine urine increased [Not Recovered/Not Resolved]
  - Glomerular filtration rate decreased [Recovering/Resolving]

NARRATIVE: CASE EVENT DATE: 2020
